FAERS Safety Report 24428207 (Version 1)
Quarter: 2024Q4

REPORT INFORMATION
  Report Type: Spontaneous
  Country: US (occurrence: None)
  Receive Date: 20241010
  Receipt Date: 20241010
  Transmission Date: 20250115
  Serious: Yes (Hospitalization)
  Sender: Public
  Company Number: None

PATIENT
  Age: 45 Year
  Sex: Female
  Weight: 56.7 kg

DRUGS (12)
  1. WEGOVY [Suspect]
     Active Substance: SEMAGLUTIDE
     Indication: Obesity
     Dosage: OTHER QUANTITY : 1 INJECTION;?OTHER FREQUENCY : 1 ;?OTHER ROUTE : INTO THE MUSCLE;?
     Route: 050
     Dates: start: 20231010, end: 20241001
  2. Lithium lidsexamethamphetamine [Concomitant]
  3. ADDERALL [Concomitant]
     Active Substance: AMPHETAMINE ASPARTATE\AMPHETAMINE SULFATE\DEXTROAMPHETAMINE SACCHARATE\DEXTROAMPHETAMINE SULFATE
  4. VRAYLAR [Concomitant]
     Active Substance: CARIPRAZINE
  5. BUSPAR [Concomitant]
     Active Substance: BUSPIRONE HYDROCHLORIDE
  6. PERCOCET [Concomitant]
     Active Substance: ACETAMINOPHEN\OXYCODONE HYDROCHLORIDE
  7. WELLBUTRIN [Concomitant]
     Active Substance: BUPROPION HYDROCHLORIDE
  8. BUPRENORPHINE [Concomitant]
     Active Substance: BUPRENORPHINE
  9. Ammoxicillan [Concomitant]
  10. FLONASE [Concomitant]
     Active Substance: FLUTICASONE PROPIONATE
  11. Affrin [Concomitant]
  12. women^s multivitamin [Concomitant]

REACTIONS (3)
  - Mental disorder [None]
  - Therapy interrupted [None]
  - Inability to afford medication [None]

NARRATIVE: CASE EVENT DATE: 20231116
